FAERS Safety Report 9411131 (Version 2)
Quarter: 2013Q3

REPORT INFORMATION
  Report Type: Spontaneous
  Country: JP (occurrence: JP)
  Receive Date: 20130721
  Receipt Date: 20130728
  Transmission Date: 20140515
  Serious: No
  Sender: FDA-Public Use
  Company Number: PHHY2013JP077146

PATIENT
  Sex: 0

DRUGS (1)
  1. EXFORGE [Suspect]
     Dosage: 1 DF, DAILY
     Route: 048

REACTIONS (2)
  - Pemphigus [Unknown]
  - Blister [Unknown]
